FAERS Safety Report 12080777 (Version 5)
Quarter: 2020Q3

REPORT INFORMATION
  Report Type: Report from Study
  Country: US (occurrence: US)
  Receive Date: 20160216
  Receipt Date: 20200710
  Transmission Date: 20201102
  Serious: No
  Sender: FDA-Public Use
  Company Number: PHHY2014US083957

PATIENT
  Age: 47 Year
  Sex: Female

DRUGS (4)
  1. ASMANEX [Concomitant]
     Active Substance: MOMETASONE FUROATE
     Indication: ASTHMA
     Dosage: UNK
     Route: 065
     Dates: start: 20140221
  2. GILENYA [Suspect]
     Active Substance: FINGOLIMOD HYDROCHLORIDE
     Indication: MULTIPLE SCLEROSIS
     Dosage: UNK, QD
     Route: 048
  3. ALBUTEROL. [Concomitant]
     Active Substance: ALBUTEROL
     Indication: ASTHMA
     Dosage: UNK
     Route: 065
     Dates: start: 20140221
  4. VITAMIN D [Concomitant]
     Active Substance: VITAMIN D NOS
     Indication: GENERAL PHYSICAL CONDITION
     Dosage: UNK
     Route: 065
     Dates: start: 20140221

REACTIONS (10)
  - Urinary tract infection [Unknown]
  - Muscle spasms [Recovered/Resolved]
  - White blood cell count decreased [Unknown]
  - Musculoskeletal stiffness [Unknown]
  - Hyperkeratosis [Not Recovered/Not Resolved]
  - Lymphocyte count decreased [Unknown]
  - Melanocytic naevus [Not Recovered/Not Resolved]
  - Hypoaesthesia [Unknown]
  - Vision blurred [Recovered/Resolved]
  - Seborrhoeic keratosis [Not Recovered/Not Resolved]

NARRATIVE: CASE EVENT DATE: 20130625
